FAERS Safety Report 4677216-2 (Version None)
Quarter: 2005Q2

REPORT INFORMATION
  Report Type: 
  Country: None (occurrence: None)
  Receive Date: 20050526
  Receipt Date: 20050516
  Transmission Date: 20051028
  Serious: Yes (Life-Threatening)
  Sender: FDA-Public Use
  Company Number: 2005048153

PATIENT
  Age: 12 Year
  Sex: Male

DRUGS (3)
  1. GENOTONORM (SOMATROPIN) [Suspect]
     Indication: ILL-DEFINED DISORDER
     Dosage: UNKNOWN, SUBCUTANEOUS
     Route: 058
  2. CAPTOPRIL [Suspect]
     Indication: ILL-DEFINED DISORDER
     Dosage: UNKNOWN, ORAL
     Route: 048
  3. LEVOTHYROXINE SODIUM [Suspect]
     Indication: ILL-DEFINED DISORDER
     Dosage: UNKNOWN, ORAL
     Route: 048

REACTIONS (10)
  - ACIDOSIS [None]
  - CARDIAC FAILURE [None]
  - CONGESTIVE CARDIOMYOPATHY [None]
  - COUGH [None]
  - CYTOLYTIC HEPATITIS [None]
  - HEPATOMEGALY [None]
  - INFLAMMATION [None]
  - NERVOUS SYSTEM DISORDER [None]
  - RENAL FAILURE [None]
  - RESPIRATORY DISTRESS [None]
